FAERS Safety Report 7981235-8 (Version None)
Quarter: 2011Q4

REPORT INFORMATION
  Report Type: 
  Country: None (occurrence: None)
  Receive Date: 20111215
  Receipt Date: 20111213
  Transmission Date: 20120403
  Serious: No
  Sender: FDA-Public Use
  Company Number: US-PFIZER INC-2011304064

PATIENT
  Sex: Female
  Weight: 70.295 kg

DRUGS (7)
  1. LIPITOR [Suspect]
     Indication: BLOOD CHOLESTEROL INCREASED
     Dosage: 20 MG, DAILY
     Route: 048
  2. FISH OIL [Suspect]
     Indication: SUPPLEMENTATION THERAPY
     Dosage: UNK
  3. PROZAC [Concomitant]
     Indication: DEPRESSION
     Dosage: 10 MG, DAILY
  4. CALCIUM CARBONATE [Suspect]
     Indication: SUPPLEMENTATION THERAPY
     Dosage: UNK
  5. MAGNESIUM [Suspect]
     Indication: SUPPLEMENTATION THERAPY
     Dosage: UNK
  6. MULTI-VITAMINS [Suspect]
     Indication: SUPPLEMENTATION THERAPY
     Dosage: UNK
  7. VITAMIN C [Suspect]
     Indication: SUPPLEMENTATION THERAPY
     Dosage: UNK

REACTIONS (1)
  - PRURITUS [None]
